FAERS Safety Report 8483169-1 (Version None)
Quarter: 2012Q3

REPORT INFORMATION
  Report Type: 
  Country: None (occurrence: None)
  Receive Date: 20120702
  Receipt Date: 20120627
  Transmission Date: 20120928
  Serious: Yes (Other)
  Sender: FDA-Public Use
  Company Number: BR-PFIZER INC-2012054891

PATIENT
  Age: 38 Year
  Sex: Female
  Weight: 47 kg

DRUGS (6)
  1. CLOMIPRAMINE HYDROCHLORIDE [Concomitant]
     Dosage: UNK
  2. DEPO-PROVERA [Suspect]
     Indication: OFF LABEL USE
     Dosage: 150 MG, EVERY 3 MONTHS (1 APPLICATION EVERY 91 DAYS)
     Route: 030
     Dates: start: 20050101, end: 20060101
  3. LANSOPRAZOLE [Concomitant]
     Indication: REFLUX GASTRITIS
     Dosage: UNK
  4. DOMPERIDONE [Concomitant]
     Indication: REFLUX GASTRITIS
     Dosage: UNK
  5. DEPO-PROVERA [Suspect]
     Indication: MENSTRUAL DISCOMFORT
  6. LEVOTHYROXINE SODIUM [Concomitant]
     Indication: THYROID DISORDER
     Dosage: 25 MG, 1X/DAY

REACTIONS (10)
  - DIPLOPIA [None]
  - WEIGHT INCREASED [None]
  - BREAST MASS [None]
  - NERVOUSNESS [None]
  - AMENORRHOEA [None]
  - WEIGHT DECREASED [None]
  - ALOPECIA [None]
  - BREAST CALCIFICATIONS [None]
  - FALL [None]
  - VISUAL IMPAIRMENT [None]
